FAERS Safety Report 8059628-2 (Version None)
Quarter: 2012Q1

REPORT INFORMATION
  Report Type: 
  Country: None (occurrence: None)
  Receive Date: 20120120
  Receipt Date: 20120110
  Transmission Date: 20120608
  Serious: Yes (Other)
  Sender: FDA-Public Use
  Company Number: PHHY2011FR111209

PATIENT
  Sex: Male

DRUGS (8)
  1. RAMIPRIL [Concomitant]
  2. ASPIRIN [Concomitant]
  3. NITRODERM [Concomitant]
  4. GLEEVEC [Suspect]
     Indication: GASTROINTESTINAL STROMAL TUMOUR
     Dosage: 400 MG, DAILY
     Route: 048
     Dates: start: 20030101, end: 20110101
  5. ACEBUTOLOL [Concomitant]
  6. IRON [Concomitant]
     Indication: ANAEMIA
  7. BETA BLOCKING AGENTS AND OTHER ANTIHYPERTENSI [Concomitant]
  8. VITAMIN B-12 [Concomitant]

REACTIONS (6)
  - DISCOMFORT [None]
  - BURSA DISORDER [None]
  - PLEURISY [None]
  - PENILE OEDEMA [None]
  - TESTICULAR OEDEMA [None]
  - PERITONEAL LESION [None]
